APPROVED DRUG PRODUCT: GALANTAMINE HYDROBROMIDE
Active Ingredient: GALANTAMINE HYDROBROMIDE
Strength: EQ 8MG BASE
Dosage Form/Route: TABLET;ORAL
Application: A077593 | Product #002 | TE Code: AB
Applicant: SENORES PHARMACEUTICALS INC
Approved: Sep 11, 2008 | RLD: No | RS: No | Type: RX